FAERS Safety Report 5833773-1 (Version None)
Quarter: 2008Q3

REPORT INFORMATION
  Report Type: 
  Country: None (occurrence: None)
  Receive Date: 20080804
  Receipt Date: 20080804
  Transmission Date: 20090109
  Serious: Yes (Hospitalization)
  Sender: FDA-Public Use
  Company Number: None

PATIENT
  Age: 51 Year
  Sex: Female
  Weight: 83.9 kg

DRUGS (2)
  1. BEVACIZUMAB GENENTECH [Suspect]
     Indication: BREAST CANCER
     Dosage: 15 MGH/KG Q 3 WEEKS IV
     Route: 042
     Dates: start: 20071128, end: 20080723
  2. GEMCITABINE [Suspect]
     Indication: BREAST CANCER
     Dosage: 1000 MG/M2  Q WEEK X2/21 DAYS IV
     Route: 042
     Dates: start: 20071128, end: 20080723

REACTIONS (2)
  - DEHYDRATION [None]
  - RENAL FAILURE ACUTE [None]
